FAERS Safety Report 12564790 (Version 1)
Quarter: 2016Q3

REPORT INFORMATION
  Report Type: Spontaneous
  Country: US (occurrence: None)
  Receive Date: 20160715
  Receipt Date: 20160715
  Transmission Date: 20161109
  Serious: Yes (Hospitalization)
  Sender: FDA-Public Use
  Company Number: None

PATIENT
  Age: 66 Year
  Sex: Female
  Weight: 49.9 kg

DRUGS (8)
  1. MULTI-VITAMINS [Concomitant]
  2. ATORVASTATIN [Concomitant]
     Active Substance: ATORVASTATIN
  3. IBUPROFEN. [Concomitant]
     Active Substance: IBUPROFEN
  4. ALPRAZOLAM. [Concomitant]
     Active Substance: ALPRAZOLAM
  5. ZOLPEDEM ER [Concomitant]
  6. SILENOR [Suspect]
     Active Substance: DOXEPIN HYDROCHLORIDE
     Indication: INSOMNIA
     Route: 048
     Dates: start: 20160516, end: 20160516
  7. ASPIRIN. [Concomitant]
     Active Substance: ASPIRIN
  8. MINERALS [Concomitant]
     Active Substance: MINERALS

REACTIONS (2)
  - Anorectal discomfort [None]
  - Proctalgia [None]

NARRATIVE: CASE EVENT DATE: 20160516
